FAERS Safety Report 15190456 (Version 1)
Quarter: 2018Q3

REPORT INFORMATION
  Report Type: Spontaneous
  Country: IT (occurrence: IT)
  Receive Date: 20180724
  Receipt Date: 20180724
  Transmission Date: 20181010
  Serious: Yes (Hospitalization, Other)
  Sender: FDA-Public Use
  Company Number: IT-SA-2018SA195525

PATIENT
  Age: 19 Year
  Sex: Female

DRUGS (1)
  1. FERLIXIT [Suspect]
     Active Substance: SODIUM FERRIC GLUCONATE COMPLEX

REACTIONS (7)
  - Laryngeal oedema [Unknown]
  - Lip oedema [Unknown]
  - Abdominal pain upper [Unknown]
  - Paraesthesia [Unknown]
  - Vomiting [Unknown]
  - Tachycardia [Unknown]
  - Flushing [Unknown]

NARRATIVE: CASE EVENT DATE: 20180703
